FAERS Safety Report 10217220 (Version 2)
Quarter: 2014Q2

REPORT INFORMATION
  Report Type: Spontaneous
  Country: DE (occurrence: DE)
  Receive Date: 20140604
  Receipt Date: 20140623
  Transmission Date: 20141212
  Serious: Yes (Other)
  Sender: FDA-Public Use
  Company Number: DE-DSJP-DSE-2014-110138

PATIENT
  Sex: 0

DRUGS (4)
  1. SEVIKAR HCT 20 MG/5 MG/12,5 MG [Suspect]
     Indication: ESSENTIAL HYPERTENSION
     Dosage: 40/10/25 MG, QD
     Route: 048
     Dates: end: 20140528
  2. PARACETAMOL [Interacting]
     Indication: PRODUCT USED FOR UNKNOWN INDICATION
     Dosage: 1000 MG, TID
     Route: 048
  3. CLEXANE [Interacting]
     Indication: PRODUCT USED FOR UNKNOWN INDICATION
     Dosage: 60 MG, QD
  4. NITROLINGUAL [Interacting]
     Indication: PRODUCT USED FOR UNKNOWN INDICATION
     Dosage: 1 DF, BID

REACTIONS (3)
  - Hypertension [Recovered/Resolved]
  - Drug interaction [Recovered/Resolved]
  - Drug ineffective [Recovered/Resolved]
